FAERS Safety Report 6666463-6 (Version None)
Quarter: 2010Q2

REPORT INFORMATION
  Report Type: 
  Country: None (occurrence: None)
  Receive Date: 20100402
  Receipt Date: 20100324
  Transmission Date: 20101027
  Serious: Yes (Hospitalization)
  Sender: FDA-Public Use
  Company Number: NL-ABBOTT-10P-114-0634465-00

PATIENT
  Sex: Male
  Weight: 84.5 kg

DRUGS (3)
  1. LUCRIN [Suspect]
     Indication: PROSTATE CANCER
     Route: 058
     Dates: start: 20061212
  2. PROTELOS 2 GRAM SACHET [Concomitant]
     Indication: OSTEOPOROSIS
     Route: 048
  3. CALCICHEW [Concomitant]
     Indication: OSTEOPOROSIS
     Route: 048

REACTIONS (1)
  - THROMBOSIS [None]
